FAERS Safety Report 9015441 (Version 1)
Quarter: 2013Q1

REPORT INFORMATION
  Report Type: Spontaneous
  Country: US (occurrence: US)
  Receive Date: 20130116
  Receipt Date: 20130116
  Transmission Date: 20140127
  Serious: Yes (Other)
  Sender: FDA-Public Use
  Company Number: US-009507513-1301USA004247

PATIENT
  Age: 76 Year
  Sex: Female

DRUGS (2)
  1. ZETIA [Suspect]
     Dosage: 10 MG, UNK
     Dates: start: 2010
  2. LISINOPRIL [Concomitant]

REACTIONS (2)
  - Angioedema [Recovering/Resolving]
  - Anaphylactic reaction [Recovering/Resolving]
